FAERS Safety Report 23138796 (Version 1)
Quarter: 2023Q4

REPORT INFORMATION
  Report Type: Spontaneous
  Country: DE (occurrence: DE)
  Receive Date: 20231102
  Receipt Date: 20231102
  Transmission Date: 20240110
  Serious: Yes (Other)
  Sender: FDA-Public Use
  Company Number: None

PATIENT
  Age: 19 Year
  Sex: Male

DRUGS (1)
  1. FINASTERIDE [Suspect]
     Active Substance: FINASTERIDE
     Indication: Alopecia
     Dosage: TAKEN FOR 6-12 MONTHS
     Route: 065
     Dates: start: 2007

REACTIONS (15)
  - Hypothyroidism [Not Recovered/Not Resolved]
  - Syncope [Not Recovered/Not Resolved]
  - Erectile dysfunction [Not Recovered/Not Resolved]
  - Impaired quality of life [Unknown]
  - Anxiety disorder [Not Recovered/Not Resolved]
  - Defaecation disorder [Not Recovered/Not Resolved]
  - Testis discomfort [Not Recovered/Not Resolved]
  - Genital atrophy [Not Recovered/Not Resolved]
  - Muscle atrophy [Not Recovered/Not Resolved]
  - Semen liquefaction abnormal [Not Recovered/Not Resolved]
  - Anal fissure [Recovered/Resolved]
  - Blood pressure increased [Not Recovered/Not Resolved]
  - Testicular pain [Recovered/Resolved]
  - Loss of libido [Not Recovered/Not Resolved]
  - Product communication issue [Unknown]
